FAERS Safety Report 5669453-5 (Version None)
Quarter: 2008Q1

REPORT INFORMATION
  Report Type: 
  Country: None (occurrence: None)
  Receive Date: 20080317
  Receipt Date: 20080313
  Transmission Date: 20080703
  Serious: Yes (Hospitalization)
  Sender: FDA-Public Use
  Company Number: B0512141A

PATIENT
  Age: 79 Year
  Sex: Female
  Weight: 61 kg

DRUGS (4)
  1. ARIXTRA [Suspect]
     Indication: THROMBOSIS PROPHYLAXIS
     Dosage: 2.5MG PER DAY
     Route: 058
     Dates: start: 20071022, end: 20071025
  2. DIOVAN [Concomitant]
     Route: 048
  3. BONALON [Concomitant]
     Route: 048
  4. LORCAM [Concomitant]
     Indication: OSTEOARTHRITIS
     Route: 048

REACTIONS (1)
  - MENIERE'S DISEASE [None]
